FAERS Safety Report 17286924 (Version 2)
Quarter: 2020Q1

REPORT INFORMATION
  Report Type: Spontaneous
  Country: JP (occurrence: JP)
  Receive Date: 20200120
  Receipt Date: 20200316
  Transmission Date: 20200409
  Serious: Yes (Hospitalization)
  Sender: FDA-Public Use
  Company Number: JP-SA-2019SA348906

PATIENT
  Age: 71 Year
  Sex: Male
  Weight: 59.4 kg

DRUGS (12)
  1. CAPECITABINE. [Suspect]
     Active Substance: CAPECITABINE
     Indication: COLON CANCER
     Dosage: 1500 MG, UNK
     Route: 048
     Dates: start: 20191022, end: 20191022
  2. CAPECITABINE. [Suspect]
     Active Substance: CAPECITABINE
     Dosage: 1500 MG, UNK
     Route: 048
     Dates: start: 20191120, end: 20191120
  3. SARPOGRELATE HYDROCHLORIDE [Concomitant]
     Active Substance: SARPOGRELATE HYDROCHLORIDE
     Dosage: UNK
     Dates: start: 20191010, end: 20191120
  4. DECADRON [DEXAMETHASONE SODIUM SUCCINATE] [Concomitant]
     Dosage: UNK
     Dates: start: 20191022, end: 20191112
  5. ALOXI [Concomitant]
     Active Substance: PALONOSETRON HYDROCHLORIDE
     Dosage: UNK
     Dates: start: 20191022, end: 20191112
  6. TELMISARTAN. [Concomitant]
     Active Substance: TELMISARTAN
  7. ELPLAT [Suspect]
     Active Substance: OXALIPLATIN
     Dosage: 210 MG, Q3W
     Route: 041
     Dates: start: 20191112, end: 20191112
  8. EMEND [Concomitant]
     Active Substance: APREPITANT
     Dosage: UNK
     Dates: start: 20191022, end: 20191114
  9. ELPLAT [Suspect]
     Active Substance: OXALIPLATIN
     Indication: COLON CANCER
     Dosage: 210 MG, Q3W
     Route: 041
     Dates: start: 20191022, end: 20191022
  10. PYDOXAL [Concomitant]
     Active Substance: PYRIDOXAL
     Dosage: UNK
     Dates: start: 20191022, end: 20191120
  11. AMLODIPINE BESILATE [Concomitant]
     Active Substance: AMLODIPINE BESYLATE
  12. CAPECITABINE. [Suspect]
     Active Substance: CAPECITABINE
     Dosage: 1500 MG, UNK
     Route: 048
     Dates: start: 20191112, end: 20191112

REACTIONS (2)
  - Platelet count decreased [Recovering/Resolving]
  - Immune thrombocytopenic purpura [Recovering/Resolving]

NARRATIVE: CASE EVENT DATE: 20191121
